FAERS Safety Report 10242036 (Version 2)
Quarter: 2014Q3

REPORT INFORMATION
  Report Type: Spontaneous
  Country: CN (occurrence: CN)
  Receive Date: 20140617
  Receipt Date: 20140823
  Transmission Date: 20150326
  Serious: Yes (Hospitalization)
  Sender: FDA-Public Use
  Company Number: PHHY2014CN072619

PATIENT
  Age: 63 Year
  Sex: Male

DRUGS (14)
  1. CARBAMAZEPINE. [Suspect]
     Active Substance: CARBAMAZEPINE
     Indication: HEADACHE
  2. METHYLPREDNISOLONE [Suspect]
     Active Substance: METHYLPREDNISOLONE
     Dosage: 200 MG/L
  3. FUSIDIC ACID [Suspect]
     Active Substance: FUSIDIC ACID
     Indication: EPIDERMOLYSIS BULLOSA
     Dosage: 0.5 MG, QD
     Route: 042
  4. POTASSIUM [Concomitant]
     Active Substance: POTASSIUM
  5. LORATADINE. [Suspect]
     Active Substance: LORATADINE
     Indication: ERYTHEMA MULTIFORME
  6. GLUCOCORTICOIDS [Suspect]
     Active Substance: UNSPECIFIED INGREDIENT
  7. LORATADINE. [Suspect]
     Active Substance: LORATADINE
     Indication: DRUG ERUPTION
  8. VITAMIN B COMPLEX [Suspect]
     Active Substance: CYANOCOBALAMIN\DEXPANTHENOL\NIACINAMIDE\PYRIDOXINE HYDROCHLORIDE\RIBOFLAVIN 5^-PHOSPHATE SODIUM\THIAMINE HYDROCHLORIDE\VITAMIN B COMPLEX
     Indication: HEADACHE
  9. METHYLPREDNISOLONE [Suspect]
     Active Substance: METHYLPREDNISOLONE
     Indication: DRUG ERUPTION
     Dosage: 160 MG/ DAY, ON THE THIRD DAY OF ADMISSION
  10. METHYLPREDNISOLONE [Suspect]
     Active Substance: METHYLPREDNISOLONE
     Dosage: 320 MG/ DAY
  11. MECOBALAMIN [Suspect]
     Active Substance: METHYLCOBALAMIN
     Indication: HEADACHE
  12. CEFATHIAMIDINE [Suspect]
     Active Substance: CEFTRIAXONE SODIUM
     Indication: ERYTHEMA MULTIFORME
  13. CEFATHIAMIDINE [Suspect]
     Active Substance: CEFTRIAXONE SODIUM
     Indication: DRUG ERUPTION
  14. METHYLPREDNISOLONE [Suspect]
     Active Substance: METHYLPREDNISOLONE
     Indication: ERYTHEMA MULTIFORME
     Dosage: 120 MG, QD
     Route: 042

REACTIONS (24)
  - Drug ineffective [Unknown]
  - Pyrexia [Not Recovered/Not Resolved]
  - Rash maculo-papular [Unknown]
  - Genital erosion [Unknown]
  - Productive cough [Unknown]
  - Abdominal distension [Unknown]
  - Nikolsky^s sign [Unknown]
  - Systemic lupus erythematosus rash [Unknown]
  - Cough [Unknown]
  - Urine output decreased [Recovered/Resolved]
  - Oral mucosa erosion [Unknown]
  - Gastrointestinal disorder [Unknown]
  - Epidermolysis bullosa [Unknown]
  - Conjunctival hyperaemia [Unknown]
  - HLA-B*1502 assay positive [Unknown]
  - Headache [Recovered/Resolved]
  - Rash generalised [Unknown]
  - Blister [Unknown]
  - Electrolyte imbalance [Unknown]
  - Fluid retention [Recovered/Resolved]
  - Scab [Unknown]
  - Urticaria [Unknown]
  - Erythema [Unknown]
  - Oliguria [Unknown]
